FAERS Safety Report 7061348-8 (Version None)
Quarter: 2010Q4

REPORT INFORMATION
  Report Type: 
  Country: None (occurrence: None)
  Receive Date: 20101026
  Receipt Date: 20101013
  Transmission Date: 20110411
  Serious: Yes (Other)
  Sender: FDA-Public Use
  Company Number: PHHY2010CA60379

PATIENT
  Sex: Female

DRUGS (2)
  1. ACLASTA [Suspect]
     Indication: OSTEOPOROSIS
     Dosage: 5 MG
     Route: 042
     Dates: start: 20081021
  2. ACLASTA [Suspect]
     Dosage: UNK
     Dates: start: 20091103

REACTIONS (7)
  - GLAUCOMA [None]
  - ORAL PAIN [None]
  - OROPHARYNGEAL BLISTERING [None]
  - PAIN IN JAW [None]
  - PYREXIA [None]
  - RASH [None]
  - TOOTHACHE [None]
